FAERS Safety Report 20652967 (Version 2)
Quarter: 2023Q2

REPORT INFORMATION
  Report Type: Report from Study
  Country: CA (occurrence: None)
  Receive Date: 20220330
  Receipt Date: 20230503
  Transmission Date: 20230721
  Serious: Yes (Other)
  Sender: FDA-Public Use
  Company Number: CA-PFIZER INC-202200450825

PATIENT
  Age: 42 Year
  Sex: Female

DRUGS (15)
  1. METHOTREXATE [Suspect]
     Active Substance: METHOTREXATE
     Indication: Product used for unknown indication
     Route: 065
  2. METHOTREXATE [Suspect]
     Active Substance: METHOTREXATE
     Route: 065
  3. COSENTYX [Suspect]
     Active Substance: SECUKINUMAB
     Indication: Psoriatic arthropathy
     Route: 058
  4. COSENTYX [Suspect]
     Active Substance: SECUKINUMAB
     Route: 058
  5. COSENTYX [Suspect]
     Active Substance: SECUKINUMAB
     Route: 058
  6. LEFLUNOMIDE [Suspect]
     Active Substance: LEFLUNOMIDE
     Indication: Product used for unknown indication
     Route: 065
  7. CELEBREX [Concomitant]
     Active Substance: CELECOXIB
     Route: 065
  8. DESOXIMETASONE [Concomitant]
     Active Substance: DESOXIMETASONE
     Route: 065
  9. DOVONEX [Concomitant]
     Active Substance: CALCIPOTRIENE
     Route: 065
  10. MAGNESIUM [Concomitant]
     Active Substance: MAGNESIUM
     Route: 065
  11. NAPROXEN [Concomitant]
     Active Substance: NAPROXEN
     Route: 065
  12. PREDNISONE [Concomitant]
     Active Substance: PREDNISONE
     Route: 065
  13. RIZATRIPTAN [Concomitant]
     Active Substance: RIZATRIPTAN
     Route: 065
  14. SULFASALAZINE [Concomitant]
     Active Substance: SULFASALAZINE
     Route: 065
  15. VENLAFAXINE [Concomitant]
     Active Substance: VENLAFAXINE HYDROCHLORIDE
     Route: 065

REACTIONS (11)
  - Product dose omission issue [Recovered/Resolved]
  - Arthralgia [Recovered/Resolved]
  - Candida infection [Recovered/Resolved]
  - Dry mouth [Recovered/Resolved]
  - Hypothyroidism [Recovered/Resolved]
  - Oral pain [Recovered/Resolved]
  - Palate injury [Recovered/Resolved]
  - Psoriatic arthropathy [Recovered/Resolved]
  - Tongue discolouration [Recovered/Resolved]
  - Tooth abscess [Recovered/Resolved]
  - Illness [Recovered/Resolved]
